FAERS Safety Report 23739394 (Version 1)
Quarter: 2024Q2

REPORT INFORMATION
  Report Type: Spontaneous
  Country: FR (occurrence: FR)
  Receive Date: 20240413
  Receipt Date: 20240413
  Transmission Date: 20240716
  Serious: Yes (Hospitalization, Other)
  Sender: FDA-Public Use
  Company Number: None

PATIENT
  Age: 3 Decade
  Sex: Female

DRUGS (1)
  1. FUROSEMIDE [Suspect]
     Active Substance: FUROSEMIDE
     Indication: Product used for unknown indication
     Dosage: UNK (120-160 MG/D, REGULARLY FOR 5 YEARS)
     Route: 065

REACTIONS (4)
  - Nephrocalcinosis [Unknown]
  - Self-medication [Recovered/Resolved]
  - Hypokalaemia [Unknown]
  - Metabolic alkalosis [Unknown]
